FAERS Safety Report 8443280 (Version 2)
Quarter: 2013Q1

REPORT INFORMATION
  Report Type: Spontaneous
  Country: US (occurrence: US)
  Receive Date: 20120306
  Receipt Date: 20130321
  Transmission Date: 20140127
  Serious: Yes (Hospitalization, Other)
  Sender: FDA-Public Use
  Company Number: US-ROCHE-1044330

PATIENT
  Sex: Female

DRUGS (9)
  1. BONIVA [Suspect]
     Indication: PRODUCT USED FOR UNKNOWN INDICATION
     Route: 048
  2. ACTONEL [Suspect]
     Indication: OSTEOPOROSIS
     Route: 048
     Dates: start: 2004, end: 201001
  3. BUTALBITAL [Concomitant]
     Route: 048
  4. CLONAZEPAM [Concomitant]
     Route: 048
  5. COMBIVENT INHALER [Concomitant]
  6. ZOLOFT [Concomitant]
     Route: 048
  7. FLAXSEED [Concomitant]
  8. POTASSIUM GLUCONATE [Concomitant]
     Route: 048
  9. TYLENOL [Concomitant]
     Route: 048

REACTIONS (3)
  - Stress fracture [Recovering/Resolving]
  - Rib fracture [Recovering/Resolving]
  - Ulna fracture [Unknown]
